FAERS Safety Report 6085479-4 (Version None)
Quarter: 2009Q1

REPORT INFORMATION
  Report Type: 
  Country: None (occurrence: None)
  Receive Date: 20090218
  Receipt Date: 20090204
  Transmission Date: 20090719
  Serious: No
  Sender: FDA-Public Use
  Company Number: 005569

PATIENT
  Age: 64 Year
  Sex: Male
  Weight: 57 kg

DRUGS (5)
  1. PLETAL [Suspect]
     Indication: CEREBRAL INFARCTION
     Dosage: 200 MG, BID;ORAL
     Route: 048
     Dates: start: 20081105, end: 20081112
  2. ARGATROBAN [Suspect]
     Indication: CEREBRAL INFARCTION
     Dosage: 10 MG, 6XDAY;IV DRIP, 10 MG,BID;IV DRIP
     Route: 041
     Dates: start: 20081105, end: 20081106
  3. ARGATROBAN [Suspect]
     Indication: CEREBRAL INFARCTION
     Dosage: 10 MG, 6XDAY;IV DRIP, 10 MG,BID;IV DRIP
     Route: 041
     Dates: start: 20081107, end: 20081111
  4. LOW-MOLECULAR DEXTRAN [Concomitant]
  5. LANSOPRAZOLE [Concomitant]

REACTIONS (1)
  - HAEMORRHAGIC INFARCTION [None]
